FAERS Safety Report 25405151 (Version 1)
Quarter: 2025Q2

REPORT INFORMATION
  Report Type: Spontaneous
  Country: PA (occurrence: PA)
  Receive Date: 20250606
  Receipt Date: 20250606
  Transmission Date: 20250716
  Serious: Yes (Other)
  Sender: TERSERA THERAPEUTICS
  Company Number: PA-AstraZeneca-CH-00878980A

PATIENT

DRUGS (2)
  1. GOSERELIN [Suspect]
     Active Substance: GOSERELIN
     Indication: Product used for unknown indication
     Route: 058
  2. ZOLADEX [Suspect]
     Active Substance: GOSERELIN ACETATE
     Indication: Product used for unknown indication
     Route: 065

REACTIONS (4)
  - Head and neck cancer [Unknown]
  - Gastric cancer [Unknown]
  - Illness [Unknown]
  - Quality of life decreased [Unknown]
